FAERS Safety Report 18440847 (Version 1)
Quarter: 2020Q4

REPORT INFORMATION
  Report Type: Spontaneous
  Country: CN (occurrence: CN)
  Receive Date: 20201029
  Receipt Date: 20201029
  Transmission Date: 20210114
  Serious: Yes (Other)
  Sender: FDA-Public Use
  Company Number: ALC2020CN008539

PATIENT
  Age: 41 Year
  Sex: Male
  Weight: 51 kg

DRUGS (1)
  1. FLUORESCITE [Suspect]
     Active Substance: FLUORESCEIN SODIUM
     Indication: FUNDUS AUTOFLUORESCENCE
     Dosage: 0.500 G, ONCE/SINGLE
     Route: 042
     Dates: start: 20200923, end: 20200923

REACTIONS (1)
  - Pruritus [Recovering/Resolving]

NARRATIVE: CASE EVENT DATE: 20200923
